FAERS Safety Report 8498719-9 (Version None)
Quarter: 2012Q3

REPORT INFORMATION
  Report Type: 
  Country: None (occurrence: None)
  Receive Date: 20120709
  Receipt Date: 20120628
  Transmission Date: 20120928
  Serious: No
  Sender: FDA-Public Use
  Company Number: US-AMGEN-USASP2011030258

PATIENT
  Sex: Female
  Weight: 79.365 kg

DRUGS (1)
  1. ENBREL [Suspect]
     Indication: RHEUMATOID ARTHRITIS
     Dosage: 50 MG, QWK
     Route: 058
     Dates: start: 20091201, end: 20110801

REACTIONS (11)
  - FUNGAL INFECTION [None]
  - DRUG INEFFECTIVE [None]
  - SINUSITIS [None]
  - RASH [None]
  - EYE IRRITATION [None]
  - VISION BLURRED [None]
  - VISUAL IMPAIRMENT [None]
  - NODULE [None]
  - ARTHRALGIA [None]
  - RHEUMATOID ARTHRITIS [None]
  - DRUG HYPERSENSITIVITY [None]
